FAERS Safety Report 9879614 (Version 2)
Quarter: 2014Q1

REPORT INFORMATION
  Report Type: Spontaneous
  Country: EC (occurrence: EC)
  Receive Date: 20140206
  Receipt Date: 20140217
  Transmission Date: 20141002
  Serious: Yes (Death)
  Sender: FDA-Public Use
  Company Number: EC-PFIZER INC-2014032396

PATIENT
  Age: 77 Year
  Sex: Male

DRUGS (2)
  1. LIPITOR [Suspect]
     Indication: HYPERCHOLESTEROLAEMIA
     Dosage: 40 MG, 1X/DAY
     Route: 048
     Dates: start: 2013, end: 20140128
  2. LIPITOR [Suspect]
     Indication: DYSLIPIDAEMIA

REACTIONS (1)
  - Myocardial infarction [Fatal]
